FAERS Safety Report 5479964-3 (Version None)
Quarter: 2007Q4

REPORT INFORMATION
  Report Type: 
  Country: None (occurrence: None)
  Receive Date: 20071008
  Receipt Date: 19980416
  Transmission Date: 20080405
  Serious: Yes (Life-Threatening, Hospitalization)
  Sender: FDA-Public Use
  Company Number: US-MERCK-98041190

PATIENT
  Age: 52 Year
  Sex: Female

DRUGS (4)
  1. MEVACOR [Suspect]
     Route: 048
     Dates: start: 19961201, end: 19970101
  2. INSULIN [Concomitant]
     Route: 065
  3. DIABETA [Concomitant]
     Route: 065
  4. PREMARIN [Concomitant]
     Route: 065

REACTIONS (4)
  - CHROMATURIA [None]
  - GENERAL SYMPTOM [None]
  - HEPATIC FAILURE [None]
  - JAUNDICE [None]
